FAERS Safety Report 12293445 (Version 1)
Quarter: 2016Q2

REPORT INFORMATION
  Report Type: Spontaneous
  Country: US (occurrence: US)
  Receive Date: 20160421
  Receipt Date: 20160421
  Transmission Date: 20160815
  Serious: Yes (Other)
  Sender: FDA-Public Use
  Company Number: PHEH2016US009244

PATIENT
  Sex: Male

DRUGS (1)
  1. ENTRESTO [Suspect]
     Active Substance: SACUBITRIL\VALSARTAN
     Indication: PRODUCT USED FOR UNKNOWN INDICATION
     Dosage: UNK
     Route: 065
     Dates: start: 20160201

REACTIONS (6)
  - Dyspnoea [Unknown]
  - Blood urine present [Unknown]
  - Loss of consciousness [Unknown]
  - Vomiting [Unknown]
  - Oral mucosal blistering [Unknown]
  - Contusion [Unknown]

NARRATIVE: CASE EVENT DATE: 20160316
